FAERS Safety Report 25857207 (Version 1)
Quarter: 2025Q3

REPORT INFORMATION
  Report Type: Spontaneous
  Country: IN (occurrence: IN)
  Receive Date: 20250929
  Receipt Date: 20250929
  Transmission Date: 20251020
  Serious: Yes (Other)
  Sender: ABBVIE
  Company Number: IN-ABBVIE-6476771

PATIENT
  Sex: Female

DRUGS (2)
  1. OZURDEX [Suspect]
     Active Substance: DEXAMETHASONE
     Indication: Diabetic retinal oedema
     Route: 050
  2. OZURDEX [Suspect]
     Active Substance: DEXAMETHASONE
     Route: 050
     Dates: start: 20250920, end: 20250920

REACTIONS (6)
  - Blindness [Unknown]
  - Vitrectomy [Unknown]
  - Hypopyon [Unknown]
  - Vitreous haze [Unknown]
  - Eye haemorrhage [Unknown]
  - Pain [Unknown]

NARRATIVE: CASE EVENT DATE: 20250922
